FAERS Safety Report 6559405-5 (Version None)
Quarter: 2010Q1

REPORT INFORMATION
  Report Type: 
  Country: None (occurrence: None)
  Receive Date: 20100129
  Receipt Date: 20090831
  Transmission Date: 20100710
  Serious: No
  Sender: FDA-Public Use
  Company Number: US-ABBOTT-09P-163-0594843-00

PATIENT
  Sex: Male
  Weight: 102.15 kg

DRUGS (6)
  1. HUMIRA [Suspect]
     Indication: PSORIASIS
     Route: 058
     Dates: start: 20090201
  2. DIGITEC [Concomitant]
     Indication: DRUG USE FOR UNKNOWN INDICATION
  3. FLECAINIDE ACETATE [Concomitant]
     Indication: CARDIAC DISORDER
  4. BENAZAPRIL [Concomitant]
     Indication: DRUG USE FOR UNKNOWN INDICATION
  5. GLIPIZIDE [Concomitant]
     Indication: DIABETES MELLITUS
  6. LYRICA [Concomitant]
     Indication: DIABETIC FOOT

REACTIONS (1)
  - DRUG DOSE OMISSION [None]
